FAERS Safety Report 24005320 (Version 4)
Quarter: 2024Q3

REPORT INFORMATION
  Report Type: Spontaneous
  Country: SI (occurrence: SI)
  Receive Date: 20240624
  Receipt Date: 20240702
  Transmission Date: 20241016
  Serious: Yes (Hospitalization)
  Sender: PFIZER
  Company Number: SI-ROCHE-3580160

PATIENT
  Sex: Male
  Weight: 2.82 kg

DRUGS (13)
  1. METHYLPREDNISOLONE SODIUM SUCCINATE [Suspect]
     Active Substance: METHYLPREDNISOLONE SODIUM SUCCINATE
     Indication: COVID-19
     Dosage: 80 MG, DAILY (80 MG QD WITH SLOW TAPER IN THE NEXT FOUR WEEKS)
     Route: 064
     Dates: start: 202201
  2. DALTEPARIN SODIUM [Suspect]
     Active Substance: DALTEPARIN SODIUM
     Indication: Thrombosis prophylaxis
     Dosage: UNK
     Route: 064
     Dates: start: 202201
  3. DALTEPARIN SODIUM [Suspect]
     Active Substance: DALTEPARIN SODIUM
     Dosage: INCREASED TO THERAPEUTIC LEVEL
     Route: 064
     Dates: start: 20220108
  4. CASIRIVIMAB\IMDEVIMAB [Suspect]
     Active Substance: CASIRIVIMAB\IMDEVIMAB
     Indication: COVID-19
     Dosage: 2400 MG (SINGLE DOSE)
     Route: 064
     Dates: start: 20220107
  5. CLOTRIMAZOLE [Suspect]
     Active Substance: CLOTRIMAZOLE
     Indication: Candida infection
     Dosage: UNK
     Route: 064
     Dates: start: 202201
  6. CLOTRIMAZOLE [Suspect]
     Active Substance: CLOTRIMAZOLE
     Indication: Enterococcal infection
  7. DEXAMETHASONE [Suspect]
     Active Substance: DEXAMETHASONE
     Indication: COVID-19
     Dosage: 6 MG, DAILY (QD)
     Route: 064
     Dates: start: 202201
  8. FUSIDIC ACID [Suspect]
     Active Substance: FUSIDIC ACID
     Indication: Candida infection
     Dosage: UNK
     Route: 064
     Dates: start: 202201
  9. FUSIDIC ACID [Suspect]
     Active Substance: FUSIDIC ACID
     Indication: Enterococcal infection
  10. FLUCLOXACILLIN [Suspect]
     Active Substance: FLUCLOXACILLIN
     Indication: Antibiotic therapy
     Dosage: UNK
     Route: 064
     Dates: start: 20220110
  11. NITRIC OXIDE [Suspect]
     Active Substance: NITRIC OXIDE
     Indication: Oxygen therapy
     Dosage: UNK
     Route: 064
     Dates: start: 202201
  12. PIPERACILLIN SODIUM\TAZOBACTAM SODIUM [Suspect]
     Active Substance: PIPERACILLIN SODIUM\TAZOBACTAM SODIUM
     Indication: Antibiotic therapy
     Dosage: UNK
     Route: 064
     Dates: start: 20220107
  13. TOCILIZUMAB [Suspect]
     Active Substance: TOCILIZUMAB
     Indication: COVID-19
     Dosage: 640 MG (8 MG/KG OF PRE-PREGNANCY BODY WEIGHT)
     Route: 064
     Dates: start: 202201

REACTIONS (4)
  - Foetal exposure during pregnancy [Unknown]
  - Neonatal respiratory distress syndrome [Unknown]
  - Large for dates baby [Unknown]
  - Premature baby [Unknown]
